FAERS Safety Report 10506244 (Version 1)
Quarter: 2014Q4

REPORT INFORMATION
  Report Type: Spontaneous
  Country: US (occurrence: US)
  Receive Date: 20141009
  Receipt Date: 20141009
  Transmission Date: 20150528
  Serious: No
  Sender: FDA-Public Use
  Company Number: US-TEVA-459684USA

PATIENT

DRUGS (1)
  1. SPRINTEC [Suspect]
     Active Substance: ETHINYL ESTRADIOL\NORGESTIMATE
     Dosage: 0.18 MG/0.035 MG

REACTIONS (2)
  - Abdominal pain upper [Unknown]
  - Abdominal distension [Unknown]
